FAERS Safety Report 5482501-0 (Version None)
Quarter: 2007Q4

REPORT INFORMATION
  Report Type: 
  Country: None (occurrence: None)
  Receive Date: 20071011
  Receipt Date: 20070725
  Transmission Date: 20080405
  Serious: No
  Sender: FDA-Public Use
  Company Number: A0651290A

PATIENT
  Age: 59 Year
  Sex: Female
  Weight: 55.5 kg

DRUGS (6)
  1. TYKERB [Suspect]
     Indication: DRUG USE FOR UNKNOWN INDICATION
     Route: 048
  2. GEMCITABINE HCL [Concomitant]
     Dosage: 1100MG WEEKLY
     Route: 042
     Dates: start: 20070101
  3. ARANESP [Concomitant]
     Dosage: 400U AS REQUIRED
     Route: 058
     Dates: start: 20070101
  4. NEUPOGEN [Concomitant]
     Dosage: 480U UNKNOWN
     Route: 058
     Dates: start: 20070101
  5. ZOFRAN [Concomitant]
     Dosage: 32MG UNKNOWN
     Route: 042
     Dates: start: 20070101
  6. ZOMETA [Concomitant]
     Dosage: 4MG UNKNOWN
     Route: 042

REACTIONS (7)
  - ABDOMINAL PAIN UPPER [None]
  - ANOREXIA [None]
  - DIARRHOEA [None]
  - DRY SKIN [None]
  - ERYTHEMA [None]
  - OEDEMA PERIPHERAL [None]
  - ORAL HERPES [None]
